FAERS Safety Report 7172682-5 (Version None)
Quarter: 2010Q4

REPORT INFORMATION
  Report Type: 
  Country: None (occurrence: None)
  Receive Date: 20101217
  Receipt Date: 20101214
  Transmission Date: 20110411
  Serious: Yes (Other)
  Sender: FDA-Public Use
  Company Number: US-AMGEN-USASP2010008562

PATIENT

DRUGS (2)
  1. NPLATE [Suspect]
     Indication: IDIOPATHIC THROMBOCYTOPENIC PURPURA
     Dosage: UNK
     Dates: start: 20100120
  2. RITUXAN [Concomitant]
     Dosage: UNK

REACTIONS (2)
  - BIOPSY BONE MARROW ABNORMAL [None]
  - PLATELET DESTRUCTION INCREASED [None]
